FAERS Safety Report 11328919 (Version 3)
Quarter: 2015Q4

REPORT INFORMATION
  Report Type: Spontaneous
  Country: US (occurrence: US)
  Receive Date: 20150801
  Receipt Date: 20151008
  Transmission Date: 20160304
  Serious: Yes (Other)
  Sender: FDA-Public Use
  Company Number: US-AUROBINDO-AUR-APL-2015-06650

PATIENT
  Sex: Female

DRUGS (7)
  1. ALDACTONE [Suspect]
     Active Substance: SPIRONOLACTONE
     Indication: HYPERTENSION
     Route: 065
  2. VERAPAMIL [Suspect]
     Active Substance: VERAPAMIL HYDROCHLORIDE
     Indication: HYPERTENSION
     Route: 065
  3. AMLODIPINE [Suspect]
     Active Substance: AMLODIPINE BESYLATE
     Indication: HYPERTENSION
     Dosage: UNK, DAILY
     Route: 048
  4. METOPROLOL [Suspect]
     Active Substance: METOPROLOL
     Indication: HYPERTENSION
     Route: 065
  5. LOSARTAN. [Suspect]
     Active Substance: LOSARTAN
     Indication: HYPERTENSION
     Route: 065
  6. COREG [Suspect]
     Active Substance: CARVEDILOL
     Indication: HYPERTENSION
     Route: 065
  7. ERYTHROMYCIN. [Suspect]
     Active Substance: ERYTHROMYCIN
     Indication: PRODUCT USED FOR UNKNOWN INDICATION
     Route: 065

REACTIONS (4)
  - Anaphylactic reaction [Unknown]
  - Drug hypersensitivity [Unknown]
  - Swollen tongue [Unknown]
  - Pharyngeal oedema [Unknown]
